FAERS Safety Report 16968189 (Version 1)
Quarter: 2019Q4

REPORT INFORMATION
  Report Type: Spontaneous
  Country: FR (occurrence: FR)
  Receive Date: 20191028
  Receipt Date: 20191028
  Transmission Date: 20200122
  Serious: Yes (Hospitalization)
  Sender: FDA-Public Use
  Company Number: FR-009507513-1910FRA014222

PATIENT
  Age: 73 Year
  Sex: Male

DRUGS (3)
  1. DIPROSTENE [Suspect]
     Active Substance: BETAMETHASONE DIPROPIONATE\BETAMETHASONE SODIUM PHOSPHATE
     Indication: JOINT INJECTION
     Dosage: 1 DOSAGE FORM, ONCE
     Route: 014
     Dates: start: 201901, end: 201901
  2. BETADINE [Suspect]
     Active Substance: POVIDONE-IODINE
     Dosage: 1 DOSAGE FORM, ONCE
     Route: 003
     Dates: start: 201901, end: 201901
  3. HYDROCORTANCYL [PREDNISOLONE ACETATE] [Suspect]
     Active Substance: PREDNISOLONE ACETATE
     Indication: JOINT INJECTION
     Dosage: 1 DOSAGE FORM, ONCE
     Route: 014
     Dates: start: 201901, end: 201901

REACTIONS (4)
  - Malaise [Recovered/Resolved]
  - Urticaria [Recovered/Resolved]
  - Hypotension [Recovered/Resolved]
  - Asthmatic crisis [Recovered/Resolved]

NARRATIVE: CASE EVENT DATE: 201901
